FAERS Safety Report 7000528-4 (Version None)
Quarter: 2010Q3

REPORT INFORMATION
  Report Type: 
  Country: None (occurrence: None)
  Receive Date: 20100920
  Receipt Date: 20100617
  Transmission Date: 20110219
  Serious: No
  Sender: FDA-Public Use
  Company Number: US-ASTRAZENECA-2009UW12102

PATIENT
  Age: 17868 Day
  Sex: Female

DRUGS (6)
  1. SEROQUEL [Suspect]
     Indication: MAJOR DEPRESSION
     Route: 048
     Dates: start: 20030804
  2. SEROQUEL [Suspect]
     Dosage: 25 MG TWICE A DAY WITH ONE ADDITIONAL IF NEEDED FOR MDD 75 MG
     Route: 048
     Dates: start: 20051016
  3. SEROQUEL [Suspect]
     Route: 048
     Dates: start: 20050919
  4. SEROQUEL [Suspect]
     Route: 048
     Dates: start: 20050919
  5. CARBAMAZEPINE [Concomitant]
     Indication: MAJOR DEPRESSION
     Dates: start: 20030804
  6. CARBAMAZEPINE [Concomitant]
     Dosage: 100 MG 3 AM 4HS FOR AN MDD OF 700 MG
     Dates: start: 20051016

REACTIONS (2)
  - DIABETIC EYE DISEASE [None]
  - TYPE 2 DIABETES MELLITUS [None]
